FAERS Safety Report 9980650 (Version 1)
Quarter: 2014Q1

REPORT INFORMATION
  Report Type: Spontaneous
  Country: US (occurrence: None)
  Receive Date: 20140305
  Receipt Date: 20140305
  Transmission Date: 20141002
  Serious: Yes (Other)
  Sender: FDA-Public Use
  Company Number: None

PATIENT
  Age: 57 Year
  Sex: Female

DRUGS (11)
  1. WARFARIN [Suspect]
     Indication: ATRIAL FIBRILLATION
     Route: 048
  2. AZTREONAM (AZACTAM) [Concomitant]
  3. MOXIFLOXACIN (AVELOX) [Concomitant]
  4. DILATIAZEM HCL (CARDIZEM) [Concomitant]
  5. BID VANCOMYCIN (VANCOCIN) [Concomitant]
  6. T/TH/SATINSULIN ASPART (NOVOLOG) [Concomitant]
  7. NOREPINEPHRINE (LEVOPHED) [Concomitant]
  8. MICAFUNGIN (MYCAMINE) [Concomitant]
  9. METRONIDAZOLE (FLAGYL) 500MG [Concomitant]
  10. LIDOCAINE (LIDODERM) [Concomitant]
  11. PREGABALIN (LYRICA) [Concomitant]

REACTIONS (6)
  - Lacunar infarction [None]
  - Central nervous system lesion [None]
  - Haemoglobin decreased [None]
  - Haemorrhage [None]
  - Cardiac arrest [None]
  - Medication error [None]
